FAERS Safety Report 4929233-2 (Version None)
Quarter: 2006Q1

REPORT INFORMATION
  Report Type: 
  Country: None (occurrence: None)
  Receive Date: 20060223
  Receipt Date: 20060213
  Transmission Date: 20060701
  Serious: Yes (Other)
  Sender: FDA-Public Use
  Company Number: 2005BI022047

PATIENT
  Age: 41 Year
  Sex: Female

DRUGS (9)
  1. AVONEX [Suspect]
     Indication: MULTIPLE SCLEROSIS
     Dosage: 30 UG; QW; IM
     Route: 030
     Dates: start: 20010819
  2. AVONEX [Suspect]
     Indication: MULTIPLE SCLEROSIS
     Dosage: 30 UG; QW; IM
     Route: 030
  3. VALIUM [Concomitant]
  4. PERCOCET [Concomitant]
  5. PHENERGAN [Concomitant]
  6. VITAMINS [Concomitant]
  7. ADVAIR DISKUS 100/50 [Concomitant]
  8. DUONEB [Concomitant]
  9. NASONEX [Concomitant]

REACTIONS (3)
  - CHOKING [None]
  - CHRONIC OBSTRUCTIVE PULMONARY DISEASE [None]
  - NAUSEA [None]
